FAERS Safety Report 22524585 (Version 2)
Quarter: 2023Q2

REPORT INFORMATION
  Report Type: Report from Study
  Country: US (occurrence: US)
  Receive Date: 20230606
  Receipt Date: 20230630
  Transmission Date: 20230722
  Serious: Yes (Other)
  Sender: FDA-Public Use
  Company Number: US-ABBVIE-4331429

PATIENT
  Sex: Female
  Weight: 58 kg

DRUGS (3)
  1. HUMIRA [Suspect]
     Active Substance: ADALIMUMAB
     Indication: Psoriatic arthropathy
     Dosage: CITRATE FREE
     Route: 058
     Dates: start: 20180928, end: 20221130
  2. HUMIRA [Suspect]
     Active Substance: ADALIMUMAB
     Dosage: LAST ADMIN DATE-2023
     Route: 058
     Dates: end: 202301
  3. HUMIRA [Suspect]
     Active Substance: ADALIMUMAB
     Route: 058
     Dates: start: 20230202

REACTIONS (16)
  - Colon cancer [Unknown]
  - Hepatic neoplasm [Not Recovered/Not Resolved]
  - Mechanical urticaria [Recovered/Resolved]
  - Skin cancer [Unknown]
  - Urticaria [Not Recovered/Not Resolved]
  - Hepatic mass [Unknown]
  - Joint swelling [Not Recovered/Not Resolved]
  - Neuropathy peripheral [Unknown]
  - Skin haemorrhage [Unknown]
  - Inflammatory pseudotumour [Unknown]
  - Skin atrophy [Unknown]
  - Device dislocation [Not Recovered/Not Resolved]
  - Liver disorder [Not Recovered/Not Resolved]
  - Scratch [Unknown]
  - Medical device pain [Unknown]
  - Limb discomfort [Unknown]

NARRATIVE: CASE EVENT DATE: 20220101
